FAERS Safety Report 9321846 (Version 1)
Quarter: 2013Q2

REPORT INFORMATION
  Report Type: Report from Study
  Country: FR (occurrence: FR)
  Receive Date: 20130531
  Receipt Date: 20130531
  Transmission Date: 20140414
  Serious: Yes (Other)
  Sender: FDA-Public Use
  Company Number: FR-BAYER-2013-019959

PATIENT
  Age: 70 Year
  Sex: Male
  Weight: 98 kg

DRUGS (1)
  1. REGORAFENIB [Suspect]
     Indication: COLORECTAL CANCER METASTATIC
     Dosage: DAY 15 TO 30, 40MG X 4 PER DAY
     Route: 048
     Dates: start: 20130125

REACTIONS (4)
  - Arrhythmia [Not Recovered/Not Resolved]
  - Asthenia [Recovered/Resolved]
  - Haematoma [Recovered/Resolved]
  - Anticoagulation drug level above therapeutic [Recovering/Resolving]
